FAERS Safety Report 7184360-7 (Version None)
Quarter: 2010Q4

REPORT INFORMATION
  Report Type: 
  Country: None (occurrence: None)
  Receive Date: 20101222
  Receipt Date: 20091215
  Transmission Date: 20110411
  Serious: No
  Sender: FDA-Public Use
  Company Number: US-PFIZER INC-2009311829

PATIENT
  Sex: Female
  Weight: 59 kg

DRUGS (1)
  1. FLUCONAZOLE [Suspect]
     Indication: UPPER RESPIRATORY FUNGAL INFECTION
     Dosage: 200 MG, 1X/DAY
     Route: 048
     Dates: start: 20091211

REACTIONS (1)
  - ABDOMINAL DISCOMFORT [None]
